FAERS Safety Report 11348960 (Version 4)
Quarter: 2015Q4

REPORT INFORMATION
  Report Type: Report from Study
  Country: US (occurrence: US)
  Receive Date: 20150807
  Receipt Date: 20151218
  Transmission Date: 20160304
  Serious: Yes (Death, Hospitalization, Other)
  Sender: FDA-Public Use
  Company Number: US-AMGEN-USASP2015075341

PATIENT
  Age: 58 Year
  Sex: Female
  Weight: 77.98 kg

DRUGS (3)
  1. FORTEO [Concomitant]
     Active Substance: TERIPARATIDE
     Dosage: UNK
  2. ENBREL [Suspect]
     Active Substance: ETANERCEPT
     Indication: PSORIATIC ARTHROPATHY
     Dosage: 50 MG, QWK
     Route: 058
     Dates: start: 201507, end: 201509
  3. XIFAXAN [Concomitant]
     Active Substance: RIFAXIMIN
     Dosage: 550 MG, UNK

REACTIONS (13)
  - Death [Fatal]
  - Mobility decreased [Unknown]
  - Liver function test abnormal [Unknown]
  - Abasia [Unknown]
  - Hypercalcaemia [Unknown]
  - Confusional state [Not Recovered/Not Resolved]
  - Muscular weakness [Unknown]
  - Tremor [Unknown]
  - Unresponsive to stimuli [Unknown]
  - Dehydration [Unknown]
  - Asthenia [Unknown]
  - Urinary tract infection [Unknown]
  - Amnesia [Not Recovered/Not Resolved]

NARRATIVE: CASE EVENT DATE: 2015
